FAERS Safety Report 17602839 (Version 1)
Quarter: 2020Q1

REPORT INFORMATION
  Report Type: Spontaneous
  Country: IT (occurrence: IT)
  Receive Date: 20200331
  Receipt Date: 20200331
  Transmission Date: 20200409
  Serious: Yes (Other)
  Sender: FDA-Public Use
  Company Number: IT-SUN PHARMACEUTICAL INDUSTRIES LTD-2020RR-242258

PATIENT
  Age: 60 Year
  Sex: Male

DRUGS (5)
  1. TACHIDOL [Suspect]
     Active Substance: ACETAMINOPHEN\CODEINE PHOSPHATE
     Indication: HAEMORRHOIDS
     Dosage: IN TOTAL
     Route: 048
     Dates: start: 20200216, end: 20200216
  2. TRAMADOL. [Suspect]
     Active Substance: TRAMADOL
     Indication: HAEMORRHOIDS
     Dosage: IN TOTAL
     Route: 048
     Dates: start: 20200216, end: 20200216
  3. PREGABALIN. [Suspect]
     Active Substance: PREGABALIN
     Indication: HAEMORRHOIDS
     Dosage: IN TOTAL
     Route: 048
     Dates: start: 20200216, end: 20200216
  4. FLUOXETINE [Concomitant]
     Active Substance: FLUOXETINE HYDROCHLORIDE
     Indication: DEPRESSION
     Dosage: 20 MILLIGRAM, UNK
     Route: 048
  5. XANAX 1 MG COMPRESSE A RILASCIO PROLUNGATO [Concomitant]
     Indication: DEPRESSION
     Dosage: 1 DOSAGE FORM, UNK
     Route: 048

REACTIONS (3)
  - Hypokinesia [Recovered/Resolved]
  - Medication error [Recovered/Resolved]
  - Bradyphrenia [Recovered/Resolved]

NARRATIVE: CASE EVENT DATE: 20200217
